FAERS Safety Report 12657044 (Version 5)
Quarter: 2016Q4

REPORT INFORMATION
  Report Type: Report from Study
  Country: None (occurrence: ES)
  Receive Date: 20160816
  Receipt Date: 20161104
  Transmission Date: 20170207
  Serious: Yes (Death, Hospitalization, Other)
  Sender: FDA-Public Use
  Company Number: ES-ABBVIE-16P-144-1701384-00

PATIENT
  Age: 55 Year
  Sex: Female

DRUGS (1)
  1. DUODOPA [Suspect]
     Active Substance: CARBIDOPA\LEVODOPA
     Indication: PARKINSON^S DISEASE
     Route: 050
     Dates: start: 201301

REACTIONS (7)
  - Urinary tract infection [Unknown]
  - Parkinson^s disease [Fatal]
  - Lung infection [Unknown]
  - Dysphagia [Unknown]
  - General physical health deterioration [Not Recovered/Not Resolved]
  - Pneumonia aspiration [Not Recovered/Not Resolved]
  - Pyrexia [Not Recovered/Not Resolved]

NARRATIVE: CASE EVENT DATE: 2016
